FAERS Safety Report 14391831 (Version 1)
Quarter: 2018Q1

REPORT INFORMATION
  Report Type: Spontaneous
  Country: US (occurrence: US)
  Receive Date: 20180113
  Receipt Date: 20180113
  Transmission Date: 20180509
  Serious: Yes (Hospitalization)
  Sender: FDA-Public Use
  Company Number: None

PATIENT
  Age: 46 Year
  Sex: Female
  Weight: 49.44 kg

DRUGS (7)
  1. WELLBUTRIN [Concomitant]
     Active Substance: BUPROPION HYDROCHLORIDE
  2. COLD MEDICINE [Concomitant]
     Active Substance: UNSPECIFIED INGREDIENT
  3. VALPROATE [Suspect]
     Active Substance: VALPROIC ACID
  4. TOPAMAX [Concomitant]
     Active Substance: TOPIRAMATE
  5. TYLENOL [Concomitant]
     Active Substance: ACETAMINOPHEN
  6. ADDERALL [Concomitant]
     Active Substance: AMPHETAMINE ASPARTATE\AMPHETAMINE SULFATE\DEXTROAMPHETAMINE SACCHARATE\DEXTROAMPHETAMINE SULFATE
  7. PLAQUENIL [Concomitant]
     Active Substance: HYDROXYCHLOROQUINE SULFATE

REACTIONS (1)
  - Formication [None]

NARRATIVE: CASE EVENT DATE: 20180109
